FAERS Safety Report 20668974 (Version 2)
Quarter: 2022Q3

REPORT INFORMATION
  Report Type: Spontaneous
  Country: CA (occurrence: CA)
  Receive Date: 20220404
  Receipt Date: 20220712
  Transmission Date: 20221026
  Serious: Yes (Other)
  Sender: FDA-Public Use
  Company Number: CA-GLAXOSMITHKLINE-CA2022GSK058602

PATIENT

DRUGS (3)
  1. ZANTAC [Suspect]
     Active Substance: RANITIDINE HYDROCHLORIDE
     Indication: Dyspepsia
     Dosage: UNK
     Route: 065
     Dates: start: 1993, end: 2006
  2. ZANTAC [Suspect]
     Active Substance: RANITIDINE HYDROCHLORIDE
     Indication: Gastrooesophageal reflux disease
  3. ZANTAC [Suspect]
     Active Substance: RANITIDINE HYDROCHLORIDE
     Indication: Dyspepsia

REACTIONS (9)
  - Renal cell carcinoma [Unknown]
  - Chronic kidney disease [Unknown]
  - Renal impairment [Unknown]
  - Clear cell renal cell carcinoma [Unknown]
  - Renal cancer [Unknown]
  - Subcapsular renal haematoma [Unknown]
  - Renal neoplasm [Unknown]
  - Renal mass [Unknown]
  - Renal cyst [Unknown]
